FAERS Safety Report 21071881 (Version 1)
Quarter: 2022Q3

REPORT INFORMATION
  Report Type: Spontaneous
  Country: US (occurrence: US)
  Receive Date: 20220712
  Receipt Date: 20220712
  Transmission Date: 20221026
  Serious: Yes (Other)
  Sender: FDA-Public Use
  Company Number: US-NOVOPROD-920102

PATIENT
  Age: 43 Year
  Sex: Male
  Weight: 100.24 kg

DRUGS (1)
  1. RYBELSUS [Suspect]
     Active Substance: SEMAGLUTIDE
     Indication: Product used for unknown indication
     Dosage: 14 MG
     Route: 048

REACTIONS (3)
  - Vomiting [Unknown]
  - Hiccups [Unknown]
  - Feeding disorder [Unknown]
